FAERS Safety Report 21576379 (Version 1)
Quarter: 2022Q4

REPORT INFORMATION
  Report Type: Spontaneous
  Country: US (occurrence: US)
  Receive Date: 20221110
  Receipt Date: 20221110
  Transmission Date: 20230113
  Serious: No
  Sender: FDA-Public Use
  Company Number: US-GLENMARK PHARMACEUTICALS-2022GMK073378

PATIENT

DRUGS (3)
  1. DESONIDE [Suspect]
     Active Substance: DESONIDE
     Indication: Dermatitis
     Dosage: UNK
     Route: 061
  2. DESONIDE [Suspect]
     Active Substance: DESONIDE
     Indication: Skin irritation
  3. DESONIDE [Suspect]
     Active Substance: DESONIDE
     Indication: Stoma care

REACTIONS (3)
  - Application site odour [Unknown]
  - Wrong technique in product usage process [Unknown]
  - Product use in unapproved indication [Unknown]
